FAERS Safety Report 5125983-6 (Version None)
Quarter: 2006Q4

REPORT INFORMATION
  Report Type: 
  Country: None (occurrence: None)
  Receive Date: 20061012
  Receipt Date: 20061002
  Transmission Date: 20070319
  Serious: Yes (Life-Threatening, Hospitalization)
  Sender: FDA-Public Use
  Company Number: US-BRISTOL-MYERS SQUIBB COMPANY-13533104

PATIENT
  Sex: Male

DRUGS (1)
  1. TEQUIN [Suspect]
     Indication: INFECTION
     Dates: start: 20020101

REACTIONS (4)
  - COMA [None]
  - HYPERGLYCAEMIA [None]
  - INJURY [None]
  - LIMB INJURY [None]
